FAERS Safety Report 26009520 (Version 1)
Quarter: 2025Q4

REPORT INFORMATION
  Report Type: Spontaneous
  Country: GB (occurrence: None)
  Receive Date: 20251107
  Receipt Date: 20251107
  Transmission Date: 20260118
  Serious: Yes (Hospitalization)
  Sender: CHIESI
  Company Number: GB-CHIESI-2025CHF07754

PATIENT
  Sex: Female

DRUGS (1)
  1. METRELEPTIN [Suspect]
     Active Substance: METRELEPTIN
     Indication: Product used for unknown indication
     Dosage: 3 MILLIGRAM, QD

REACTIONS (1)
  - Ill-defined disorder [Unknown]
